FAERS Safety Report 17170569 (Version 1)
Quarter: 2019Q4

REPORT INFORMATION
  Report Type: Report from Study
  Country: US (occurrence: US)
  Receive Date: 20191218
  Receipt Date: 20191218
  Transmission Date: 20200122
  Serious: Yes (Hospitalization)
  Sender: FDA-Public Use
  Company Number: US-MYLANLABS-2019M1125782

PATIENT
  Age: 173 Day
  Weight: 6.22 kg

DRUGS (4)
  1. DEXMEDETOMIDINE. [Suspect]
     Active Substance: DEXMEDETOMIDINE
     Indication: ANAESTHESIA PROCEDURE
     Dosage: LOADING DOSE OF 1 MG/KG
     Route: 042
  2. DEXMEDETOMIDINE. [Suspect]
     Active Substance: DEXMEDETOMIDINE
     Dosage: LOADING DOSE OF DEXMEDETOMIDINE CPB CIRCUIT VOLUME (0.0012 MICROG/ML)
     Route: 042
  3. PROPRANOLOL [Suspect]
     Active Substance: PROPRANOLOL HYDROCHLORIDE
     Indication: PRODUCT USED FOR UNKNOWN INDICATION
     Route: 065
  4. DEXMEDETOMIDINE. [Suspect]
     Active Substance: DEXMEDETOMIDINE
     Dosage: FOLLOWED BY 0.75 ...
     Route: 042

REACTIONS (1)
  - Nodal rhythm [Recovered/Resolved]
